FAERS Safety Report 20776166 (Version 1)
Quarter: 2022Q2

REPORT INFORMATION
  Report Type: Spontaneous
  Country: US (occurrence: US)
  Receive Date: 20220502
  Receipt Date: 20220502
  Transmission Date: 20220721
  Serious: No
  Sender: FDA-Public Use
  Company Number: US-HORIZON THERAPEUTICS-HZN-2021-004995

PATIENT
  Sex: Female

DRUGS (2)
  1. DUEXIS [Suspect]
     Active Substance: FAMOTIDINE\IBUPROFEN
     Indication: Osteoarthritis
     Dosage: 800MG/26.6MG, 1 TAB 3X A DAY AS NEEDED
     Route: 065
  2. DUEXIS [Suspect]
     Active Substance: FAMOTIDINE\IBUPROFEN
     Dosage: 1 DOSAGE FORM (1 TABLET), BID AS NEEDED
     Route: 048

REACTIONS (5)
  - Carpal tunnel syndrome [Unknown]
  - Pain in extremity [Unknown]
  - Road traffic accident [Unknown]
  - Concussion [Unknown]
  - Off label use [Unknown]
